FAERS Safety Report 8508102-5 (Version None)
Quarter: 2012Q3

REPORT INFORMATION
  Report Type: 
  Country: None (occurrence: None)
  Receive Date: 20120713
  Receipt Date: 20120706
  Transmission Date: 20120928
  Serious: Yes (Death, Hospitalization)
  Sender: FDA-Public Use
  Company Number: JP-BAYER-201012860BYL

PATIENT
  Age: 63 Year
  Sex: Male
  Weight: 67.5 kg

DRUGS (19)
  1. MAGLAX [Concomitant]
     Indication: CONSTIPATION PROPHYLAXIS
     Dosage: 990 MG (DAILY DOSE), , ORAL
     Route: 048
     Dates: start: 20100511, end: 20100604
  2. KERATINAMIN [Concomitant]
     Indication: PROPHYLAXIS
     Route: 061
     Dates: start: 20100506, end: 20100526
  3. NORVASC [Concomitant]
     Dosage: 5 MG (DAILY DOSE), , ORAL
     Route: 048
     Dates: start: 20100415, end: 20100604
  4. NEO-MINOPHAGEN C [Concomitant]
     Dosage: 40 ML (DAILY DOSE), , INTRAVENOUS
     Route: 042
     Dates: start: 20100514, end: 20100514
  5. OXYCONTIN [Concomitant]
     Dosage: 15 MG (DAILY DOSE), , ORAL
     Route: 048
     Dates: start: 20100524, end: 20100604
  6. LOXOPROFEN [Concomitant]
     Dosage: 180 MG (DAILY DOSE), , ORAL
     Route: 048
     Dates: start: 20100415, end: 20100604
  7. FAMOTIDINE [Concomitant]
     Indication: GASTRITIS PROPHYLAXIS
     Dosage: 40 MG (DAILY DOSE), , ORAL
     Route: 048
     Dates: start: 20100415, end: 20100604
  8. CANDESARTAN CILEXETIL [Concomitant]
     Dosage: 4 MG (DAILY DOSE), , ORAL
     Route: 048
     Dates: start: 20100419, end: 20100604
  9. URSO 250 [Concomitant]
     Dosage: 600 MG (DAILY DOSE), , ORAL
     Route: 048
     Dates: start: 20100422, end: 20100604
  10. OXYCODONE HYDROCHLORIDE [Concomitant]
     Route: 048
     Dates: start: 20100511, end: 20100602
  11. EVAMYL [Concomitant]
     Indication: PROPHYLAXIS
     Route: 048
     Dates: start: 20100512, end: 20100515
  12. NEO-MINOPHAGEN C [Concomitant]
     Dosage: 40 ML (DAILY DOSE), , INTRAVENOUS
     Route: 042
     Dates: start: 20100517, end: 20100517
  13. LAXOBERON [Concomitant]
     Indication: CONSTIPATION PROPHYLAXIS
     Dosage: 5 MG (DAILY DOSE), , ORAL
     Route: 048
     Dates: start: 20100510, end: 20100601
  14. NEXAVAR [Suspect]
     Indication: HEPATIC NEOPLASM MALIGNANT
     Route: 048
     Dates: start: 20100506, end: 20100526
  15. TRICHLORMETHIAZIDE [Concomitant]
     Dosage: 1 MG (DAILY DOSE), , ORAL
     Route: 048
     Dates: start: 20100419, end: 20100604
  16. FLIVASTATIN SODIUM [Concomitant]
     Dosage: 25 MG (DAILY DOSE), , ORAL
     Route: 048
     Dates: start: 20100507, end: 20100604
  17. OXYCONTIN [Concomitant]
     Dosage: 10 MG (DAILY DOSE), , ORAL
     Route: 048
     Dates: start: 20100511, end: 20100512
  18. OXYCONTIN [Concomitant]
     Dosage: 10 MG (DAILY DOSE), , ORAL
     Route: 048
     Dates: start: 20100520, end: 20100523
  19. NEO-MINOPHAGEN C [Concomitant]
     Dosage: 40 ML (DAILY DOSE), , INTRAVENOUS
     Route: 042
     Dates: start: 20100512, end: 20100512

REACTIONS (10)
  - HEPATIC FAILURE [None]
  - ALANINE AMINOTRANSFERASE INCREASED [None]
  - VOMITING [None]
  - DECREASED APPETITE [None]
  - PALMAR-PLANTAR ERYTHRODYSAESTHESIA SYNDROME [None]
  - HYPERBILIRUBINAEMIA [None]
  - NAUSEA [None]
  - DYSPHONIA [None]
  - RASH [None]
  - ASPARTATE AMINOTRANSFERASE INCREASED [None]
